FAERS Safety Report 7813153-X (Version None)
Quarter: 2011Q4

REPORT INFORMATION
  Report Type: 
  Country: None (occurrence: None)
  Receive Date: 20111013
  Receipt Date: 20111010
  Transmission Date: 20120403
  Serious: Yes (Hospitalization, Other)
  Sender: FDA-Public Use
  Company Number: PHHO2010NL12613

PATIENT
  Sex: Male
  Weight: 82.5 kg

DRUGS (11)
  1. BUMETANIDE [Suspect]
     Indication: CARDIAC FAILURE
     Dosage: 110 MG, QD
     Dates: start: 20080908, end: 20100723
  2. SPIRONOLACTONE [Suspect]
     Indication: CARDIAC FAILURE
     Dosage: 50 MG, QD
     Dates: start: 20091201, end: 20100723
  3. ISOSORBIDE MONONITRATE [Concomitant]
     Indication: ACUTE CORONARY SYNDROME
     Dosage: 60 MG, BID
     Dates: start: 20041201, end: 20100723
  4. CARVEDILOL [Concomitant]
     Indication: CARDIAC FAILURE
     Dosage: UNK
     Dates: start: 20071023
  5. ENALAPRIL MALEATE [Suspect]
     Indication: CARDIAC FAILURE
     Dosage: 10 MG, BID
     Route: 048
     Dates: start: 20100721, end: 20100724
  6. PROMOCARD [Suspect]
     Indication: CARDIAC FAILURE
  7. BUMETANIDE [Suspect]
     Dosage: UNK
     Dates: start: 20100724
  8. BLINDED NO TREATMENT RECEIVED [Suspect]
     Indication: CARDIAC FAILURE CHRONIC
     Dosage: NO TREATMENT
  9. ISOSORBIDE MONONITRATE [Concomitant]
     Dosage: UNK
     Dates: start: 20100724
  10. ENALAPRIL MALEATE [Suspect]
     Indication: CARDIAC FAILURE CHRONIC
     Dosage: NO TREATMENT
  11. VALSARTAN [Suspect]
     Indication: CARDIAC FAILURE CHRONIC
     Dosage: NO TREATMENT

REACTIONS (5)
  - RENAL IMPAIRMENT [None]
  - FALL [None]
  - ORTHOSTATIC HYPOTENSION [None]
  - DEHYDRATION [None]
  - SYNCOPE [None]
